FAERS Safety Report 6260077-8 (Version None)
Quarter: 2009Q3

REPORT INFORMATION
  Report Type: 
  Country: None (occurrence: None)
  Receive Date: 20090708
  Receipt Date: 20090626
  Transmission Date: 20100115
  Serious: Yes (Death)
  Sender: FDA-Public Use
  Company Number: KR-PFIZER INC-2009233875

PATIENT
  Age: 70 Year

DRUGS (4)
  1. VORICONAZOLE [Suspect]
     Dosage: 200 MG, 2X/DAY
     Route: 048
     Dates: start: 20060517, end: 20060529
  2. SULFAMETHOXAZOLE AND TRIMETHOPRIM [Concomitant]
     Dosage: UNK
     Route: 042
     Dates: start: 20060504, end: 20060607
  3. AMPHOTERICIN B [Concomitant]
     Dosage: 50 MG, 1X/DAY
     Route: 042
     Dates: start: 20060602, end: 20060607
  4. VANCOMYCIN [Concomitant]
     Indication: PYREXIA
     Dosage: 0.5 G, 1X/DAY
     Route: 042
     Dates: start: 20060603, end: 20060607

REACTIONS (1)
  - DEATH [None]
